FAERS Safety Report 13512761 (Version 1)
Quarter: 2017Q2

REPORT INFORMATION
  Report Type: Spontaneous
  Country: US (occurrence: US)
  Receive Date: 20170504
  Receipt Date: 20170504
  Transmission Date: 20170830
  Serious: Yes (Hospitalization)
  Sender: FDA-Public Use
  Company Number: None

PATIENT
  Age: 84 Year
  Sex: Male
  Weight: 76.2 kg

DRUGS (9)
  1. PRAVACHOL [Concomitant]
     Active Substance: PRAVASTATIN SODIUM
  2. COLACE [Concomitant]
     Active Substance: DOCUSATE SODIUM
  3. WARFARIN [Suspect]
     Active Substance: WARFARIN
     Indication: ATRIAL FIBRILLATION
     Dosage: 1MG QHS PO??CHRONIC
     Route: 048
  4. LANOXIN [Concomitant]
     Active Substance: DIGOXIN
  5. COREG [Concomitant]
     Active Substance: CARVEDILOL
  6. KLOR-CON [Concomitant]
     Active Substance: POTASSIUM CHLORIDE
  7. TESSALON [Concomitant]
     Active Substance: BENZONATATE
  8. LASIX [Concomitant]
     Active Substance: FUROSEMIDE
  9. THERAGRAN [Concomitant]
     Active Substance: VITAMINS

REACTIONS (4)
  - Coagulopathy [None]
  - International normalised ratio increased [None]
  - Anaemia [None]
  - Pneumonia [None]

NARRATIVE: CASE EVENT DATE: 20161102
